FAERS Safety Report 16775827 (Version 1)
Quarter: 2019Q3

REPORT INFORMATION
  Report Type: Spontaneous
  Country: JP (occurrence: JP)
  Receive Date: 20190905
  Receipt Date: 20190905
  Transmission Date: 20191005
  Serious: Yes (Other)
  Sender: FDA-Public Use
  Company Number: JP-PFIZER INC-2019378859

PATIENT

DRUGS (1)
  1. ZYVOX [Suspect]
     Active Substance: LINEZOLID
     Dosage: UNK

REACTIONS (3)
  - Thrombocytopenia [Not Recovered/Not Resolved]
  - Anaemia [Unknown]
  - Disseminated intravascular coagulation [Unknown]
